FAERS Safety Report 20638866 (Version 3)
Quarter: 2022Q2

REPORT INFORMATION
  Report Type: Report from Study
  Country: ES (occurrence: ES)
  Receive Date: 20220325
  Receipt Date: 20220414
  Transmission Date: 20220721
  Serious: Yes (Hospitalization)
  Sender: FDA-Public Use
  Company Number: ES-ABBVIE-22P-144-4324495-00

PATIENT
  Age: 43 Year
  Sex: Female

DRUGS (19)
  1. ELSUBRUTINIB [Suspect]
     Active Substance: ELSUBRUTINIB
     Indication: Systemic lupus erythematosus
     Route: 048
     Dates: start: 20220303, end: 20220316
  2. UPADACITINIB [Suspect]
     Active Substance: UPADACITINIB
     Indication: Systemic lupus erythematosus
     Route: 048
     Dates: start: 20220303, end: 20220316
  3. ETINILESTRADIOL [Concomitant]
     Indication: Contraception
     Route: 048
     Dates: start: 20210506
  4. DROSPIRENONE [Concomitant]
     Active Substance: DROSPIRENONE
     Indication: Contraception
     Route: 048
     Dates: start: 20210506
  5. ETORICOXIB [Concomitant]
     Active Substance: ETORICOXIB
     Indication: Arthralgia
     Route: 048
     Dates: start: 20210913
  6. TRIAMCINOLONE ACETONIDE [Concomitant]
     Active Substance: TRIAMCINOLONE ACETONIDE
     Indication: Anal abscess
     Route: 061
     Dates: start: 20210913
  7. PREDNISONE [Concomitant]
     Active Substance: PREDNISONE
     Indication: Systemic lupus erythematosus
     Route: 048
     Dates: start: 20211015
  8. BILASTIN [Concomitant]
     Indication: Seasonal allergy
     Route: 048
     Dates: start: 20211111
  9. CHOLECALCIFEROL [Concomitant]
     Active Substance: CHOLECALCIFEROL
     Indication: Osteoporosis prophylaxis
     Route: 048
     Dates: start: 20211111
  10. ALBUTEROL [Concomitant]
     Active Substance: ALBUTEROL
     Indication: Bronchitis
     Route: 055
     Dates: start: 20211203
  11. ACETYLCYSTEINE [Concomitant]
     Active Substance: ACETYLCYSTEINE
     Indication: Bronchitis
     Route: 048
     Dates: start: 20211203
  12. FOLIC ACID [Concomitant]
     Active Substance: FOLIC ACID
     Indication: Vitamin supplementation
     Route: 048
     Dates: start: 20200204
  13. ACETAMINOPHEN [Concomitant]
     Active Substance: ACETAMINOPHEN
     Indication: Systemic lupus erythematosus
     Route: 048
     Dates: start: 201909
  14. IBUPROFEN [Concomitant]
     Active Substance: IBUPROFEN
     Indication: Systemic lupus erythematosus
     Route: 048
     Dates: start: 201909
  15. VORTIOXETINE [Concomitant]
     Active Substance: VORTIOXETINE
     Indication: Depression
     Route: 048
     Dates: start: 202102
  16. CALCIUM CARBONATE [Concomitant]
     Active Substance: CALCIUM CARBONATE
     Indication: Prophylaxis
     Route: 048
     Dates: start: 201911
  17. VITAMIN D [Concomitant]
     Active Substance: VITAMIN D NOS
     Indication: Prophylaxis
     Route: 048
     Dates: start: 201911
  18. METHOTREXATE [Concomitant]
     Active Substance: METHOTREXATE
     Indication: Systemic lupus erythematosus
     Route: 048
     Dates: start: 20211230, end: 20220318
  19. HYDROXYCHLOROQUINE [Concomitant]
     Active Substance: HYDROXYCHLOROQUINE
     Indication: Systemic lupus erythematosus
     Route: 048
     Dates: start: 20191126, end: 20220318

REACTIONS (2)
  - Systemic lupus erythematosus [Not Recovered/Not Resolved]
  - Arthritis [Not Recovered/Not Resolved]

NARRATIVE: CASE EVENT DATE: 20220312
